FAERS Safety Report 20480442 (Version 2)
Quarter: 2022Q1

REPORT INFORMATION
  Report Type: Report from Study
  Country: IT (occurrence: None)
  Receive Date: 20220216
  Receipt Date: 20220228
  Transmission Date: 20220423
  Serious: Yes (Other)
  Sender: FDA-Public Use
  Company Number: IT-ROCHE-3019839

PATIENT
  Age: 17 Year
  Sex: Male

DRUGS (4)
  1. OCRELIZUMAB [Suspect]
     Active Substance: OCRELIZUMAB
     Indication: Relapsing-remitting multiple sclerosis
     Dosage: DOSE LAST STUDY DRUG ADMIN PRIOR AE/SAE 600 MG (START/STOP DATE  07-SEP-2021)?TOTAL VOLUME PRIOR AE/
     Route: 042
     Dates: start: 20201124
  2. METHYLPREDNISOLONE [Suspect]
     Active Substance: METHYLPREDNISOLONE
     Indication: Product used for unknown indication
     Dosage: START DATE OF MOST RECENT DOSE OF STUDY DRUG PRIOR TO AE/SAE 07-SEP-2021?DOSE LAST STUDY DRUG ADMIN
     Route: 042
  3. MULTICENTRUM [Concomitant]
     Dosage: FOR SUPPLEMENTATION OF VITAMINS AND MINERALS
     Route: 048
     Dates: start: 20210601
  4. AUGMENTIN [Concomitant]
     Active Substance: AMOXICILLIN\CLAVULANATE POTASSIUM
     Indication: Tooth abscess
     Route: 048
     Dates: start: 20220128, end: 20220131

REACTIONS (1)
  - Blood creatine phosphokinase increased [Recovered/Resolved]

NARRATIVE: CASE EVENT DATE: 20220201
